FAERS Safety Report 8407772-X (Version None)
Quarter: 2012Q2

REPORT INFORMATION
  Report Type: 
  Country: None (occurrence: None)
  Receive Date: 20120604
  Receipt Date: 20120525
  Transmission Date: 20120825
  Serious: Yes (Congenital Anomaly)
  Sender: FDA-Public Use
  Company Number: US-GLAXOSMITHKLINE-A0979856A

PATIENT
  Sex: Male

DRUGS (10)
  1. AMITRIPTYLINE HCL [Concomitant]
     Route: 064
  2. FOLIC ACID [Concomitant]
     Route: 064
  3. BUSPAR [Concomitant]
     Route: 064
  4. ACCOLATE [Concomitant]
     Route: 064
  5. PAXIL [Suspect]
     Indication: PRODUCT USED FOR UNKNOWN INDICATION
     Route: 064
  6. TIGAN [Concomitant]
     Route: 064
  7. PROVENTIL [Concomitant]
     Route: 064
  8. MULTI-VITAMINS [Concomitant]
     Route: 064
  9. PHENERGAN [Concomitant]
     Route: 064
  10. AZMACORT [Concomitant]
     Route: 064

REACTIONS (3)
  - ATRIAL SEPTAL DEFECT [None]
  - FOETAL EXPOSURE DURING PREGNANCY [None]
  - PATENT DUCTUS ARTERIOSUS [None]
